FAERS Safety Report 8305881-7 (Version None)
Quarter: 2012Q2

REPORT INFORMATION
  Report Type: 
  Country: None (occurrence: None)
  Receive Date: 20120423
  Receipt Date: 20120419
  Transmission Date: 20120825
  Serious: Yes (Death)
  Sender: FDA-Public Use
  Company Number: SE-BIOMARINP-002096

PATIENT
  Sex: Female
  Weight: 14.5 kg

DRUGS (10)
  1. ATROPINE [Concomitant]
  2. OXYGEN [Concomitant]
  3. EPINEPHRINE [Concomitant]
  4. MORPHINE [Concomitant]
  5. LORATADINE [Concomitant]
     Indication: PRODUCT USED FOR UNKNOWN INDICATION
     Dates: start: 20111031
  6. SOLU-CORTEF [Concomitant]
  7. TRIBONAT [Concomitant]
  8. HYDROCORTISONE [Concomitant]
     Indication: INFUSION RELATED REACTION
     Route: 041
     Dates: start: 20090101
  9. NAGLAZYME [Suspect]
     Indication: MUCOPOLYSACCHARIDOSIS VI
     Route: 042
     Dates: start: 20080801
  10. ACETAMINOPHEN [Concomitant]

REACTIONS (2)
  - PRODUCT QUALITY ISSUE [None]
  - ANAPHYLACTIC SHOCK [None]
